FAERS Safety Report 5094545-1 (Version None)
Quarter: 2006Q3

REPORT INFORMATION
  Report Type: 
  Country: None (occurrence: None)
  Receive Date: 20060830
  Receipt Date: 20060817
  Transmission Date: 20061208
  Serious: Yes (Hospitalization)
  Sender: FDA-Public Use
  Company Number: 200608IM000467

PATIENT
  Age: 15 Year
  Sex: Male

DRUGS (1)
  1. ACTIMMUNE [Suspect]
     Indication: NEUTROPHIL FUNCTION DISORDER
     Dosage: 70 UG, TIW, SUBCUTANEOUS
     Route: 058
     Dates: start: 20030303

REACTIONS (3)
  - ABDOMINAL PAIN [None]
  - DEHYDRATION [None]
  - PYREXIA [None]
